FAERS Safety Report 23030653 (Version 1)
Quarter: 2023Q4

REPORT INFORMATION
  Report Type: Spontaneous
  Country: US (occurrence: US)
  Receive Date: 20231005
  Receipt Date: 20231005
  Transmission Date: 20240110
  Serious: No
  Sender: FDA-Public Use
  Company Number: US-ELI_LILLY_AND_COMPANY-US202308011305

PATIENT
  Sex: Female

DRUGS (5)
  1. OLUMIANT [Suspect]
     Active Substance: BARICITINIB
     Indication: Alopecia areata
     Dosage: 2 MG, UNKNOWN
     Route: 048
     Dates: start: 20230816
  2. OLUMIANT [Suspect]
     Active Substance: BARICITINIB
     Dosage: 4 MG, UNKNOWN
     Route: 048
  3. NUTRAFOL [Concomitant]
     Indication: Product used for unknown indication
  4. ASCORBIC ACID [Concomitant]
     Active Substance: ASCORBIC ACID
     Indication: Product used for unknown indication
     Dosage: UNK
  5. PROBIOTICS [BIFIDOBACTERIUM LONGUM;LACTOBACIL [Concomitant]
     Indication: Product used for unknown indication
     Dosage: UNK

REACTIONS (4)
  - Micturition urgency [Unknown]
  - Pain in extremity [Unknown]
  - Pollakiuria [Unknown]
  - Back pain [Unknown]
